FAERS Safety Report 8362295-1 (Version None)
Quarter: 2012Q2

REPORT INFORMATION
  Report Type: 
  Country: None (occurrence: None)
  Receive Date: 20120515
  Receipt Date: 20120504
  Transmission Date: 20120825
  Serious: Yes (Hospitalization, Other)
  Sender: FDA-Public Use
  Company Number: US-ELI_LILLY_AND_COMPANY-US201101003510

PATIENT
  Sex: Female

DRUGS (20)
  1. HYDROCHLOROTHIAZIDE [Concomitant]
  2. LEVOTHYROXINE SODIUM [Concomitant]
  3. EFFEXOR [Concomitant]
  4. RISPERDAL [Concomitant]
  5. SIMVASTATIN [Concomitant]
  6. SINGULAIR [Concomitant]
  7. KLONOPIN [Concomitant]
  8. FORTEO [Suspect]
     Dosage: 20 UG, QD
     Dates: start: 20101001, end: 20120401
  9. LASOPRAZOLE [Concomitant]
  10. CLARITIN [Concomitant]
  11. FENOFIBRATE [Concomitant]
  12. CEPHALEXIN [Concomitant]
     Dosage: 500 MG, EVERY 8 HRS
  13. VITAMIN D [Concomitant]
  14. POTASSIUM CHLORIDE [Concomitant]
     Indication: BLOOD POTASSIUM DECREASED
     Dosage: 20 MEQ, QD
  15. RESTASIS [Concomitant]
  16. TOPAMAX [Concomitant]
  17. FORTEO [Suspect]
     Indication: OSTEOPOROSIS
     Dosage: 20 UG, QD
     Dates: start: 20101001, end: 20120401
  18. ARICEPT [Concomitant]
  19. ORPHENADRINE CITRATE [Concomitant]
  20. SPIRIVA [Concomitant]

REACTIONS (9)
  - NAUSEA [None]
  - BLOOD POTASSIUM DECREASED [None]
  - APPENDICITIS [None]
  - DRUG DOSE OMISSION [None]
  - PNEUMONIA [None]
  - LUNG NEOPLASM MALIGNANT [None]
  - INJECTION SITE PAIN [None]
  - BLOOD PRESSURE ABNORMAL [None]
  - COUGH [None]
